FAERS Safety Report 12216537 (Version 1)
Quarter: 2016Q1

REPORT INFORMATION
  Report Type: Spontaneous
  Country: None (occurrence: None)
  Receive Date: 20160328
  Receipt Date: 20160328
  Transmission Date: 20160526
  Serious: No
  Sender: FDA-Public Use
  Company Number: None

PATIENT
  Sex: Male

DRUGS (1)
  1. TRULICITY [Suspect]
     Active Substance: DULAGLUTIDE

REACTIONS (5)
  - Pyrexia [None]
  - Nephrolithiasis [None]
  - Injection site pain [None]
  - Loss of consciousness [None]
  - Malaise [None]
